FAERS Safety Report 8482269-X (Version None)
Quarter: 2012Q3

REPORT INFORMATION
  Report Type: 
  Country: None (occurrence: None)
  Receive Date: 20120702
  Receipt Date: 20120626
  Transmission Date: 20120928
  Serious: Yes (Other)
  Sender: FDA-Public Use
  Company Number: PHFR2010GB01213

PATIENT
  Sex: Female

DRUGS (11)
  1. HYOSCINE HYDROBROMIDE [Concomitant]
     Indication: EXTRAPYRAMIDAL DISORDER
     Dosage: 600 UG/DAY
     Route: 048
  2. CLOZARIL [Suspect]
     Indication: SCHIZOPHRENIA
     Dosage: 300MG/DAY
     Route: 048
     Dates: start: 20100625
  3. SULPIRIDE [Concomitant]
     Indication: MENTAL DISORDER
     Dosage: 400 MG/DAY
     Route: 048
  4. MIRTAZAPINE [Concomitant]
     Indication: DEMENTIA
     Dosage: 45 MG/DAY
     Route: 048
  5. FOLIC ACID [Concomitant]
     Dosage: 5 MG/DAY
     Route: 048
  6. TRAMADOL HCL [Concomitant]
     Route: 048
  7. TEMAZEPAM [Concomitant]
     Indication: SLEEP DISORDER
     Dosage: 15 MG/DAY
     Route: 048
  8. SENNA-MINT WAF [Concomitant]
     Dosage: 15 MG/DAY
     Route: 048
  9. CLOZARIL [Suspect]
     Dosage: 350 MG DAILY
     Route: 048
     Dates: start: 20100901
  10. LANSOPRAZOLE [Concomitant]
     Route: 048
  11. METFORMIN HCL [Concomitant]
     Dosage: 1500 MG/DAY
     Route: 048

REACTIONS (4)
  - PAIN IN EXTREMITY [None]
  - CHRONIC LYMPHOCYTIC LEUKAEMIA [None]
  - LYMPHOCYTE COUNT INCREASED [None]
  - WHITE BLOOD CELL COUNT INCREASED [None]
